FAERS Safety Report 10224123 (Version 1)
Quarter: 2014Q2

REPORT INFORMATION
  Report Type: Spontaneous
  Country: JP (occurrence: JP)
  Receive Date: 20140609
  Receipt Date: 20140609
  Transmission Date: 20141212
  Serious: Yes (Other)
  Sender: FDA-Public Use
  Company Number: PHHY2014JP069765

PATIENT
  Sex: Female

DRUGS (3)
  1. CLOZARIL [Suspect]
     Dosage: UNK
     Route: 048
  2. CLOZARIL [Suspect]
     Dosage: 150 MG, QD
     Route: 048
  3. CLOZARIL [Suspect]
     Dosage: 175 MG, QD
     Route: 048

REACTIONS (3)
  - Hallucination, auditory [Unknown]
  - Cystitis [Unknown]
  - White blood cell count increased [Unknown]
